FAERS Safety Report 17414203 (Version 1)
Quarter: 2020Q1

REPORT INFORMATION
  Report Type: Spontaneous
  Country: SE (occurrence: SE)
  Receive Date: 20200213
  Receipt Date: 20200213
  Transmission Date: 20200409
  Serious: Yes (Other)
  Sender: FDA-Public Use
  Company Number: SE-NOVOPROD-711032

PATIENT
  Age: 62 Year
  Sex: Male

DRUGS (11)
  1. CANDESARTAN KRKA [Concomitant]
     Active Substance: CANDESARTAN
     Dosage: 32 MG, QD
     Route: 065
  2. OZEMPIC [Suspect]
     Active Substance: SEMAGLUTIDE
     Dosage: 0.5 MG, QW
     Route: 058
     Dates: start: 20190625, end: 201909
  3. METFORMIN ACTAVIS [Concomitant]
     Active Substance: METFORMIN HYDROCHLORIDE
     Dosage: 2000 MG, QD
     Route: 065
  4. OZEMPIC [Suspect]
     Active Substance: SEMAGLUTIDE
     Dosage: 1 MG
     Route: 058
     Dates: start: 20190911, end: 201909
  5. DIGOXIN BIOPHAUSIA [Concomitant]
     Active Substance: DIGOXIN
     Dosage: 0.25 MG, QD
     Route: 065
  6. OZEMPIC [Suspect]
     Active Substance: SEMAGLUTIDE
     Indication: PRODUCT USED FOR UNKNOWN INDICATION
     Dosage: 0.25 MG
     Route: 058
     Dates: start: 20190318, end: 201906
  7. BISOPROLOL TEVA [Concomitant]
     Active Substance: BISOPROLOL
     Dosage: 20 MG, QD
     Route: 065
  8. WARFARIN ORION [Concomitant]
     Active Substance: WARFARIN
     Dosage: 1 DF, QD
     Route: 065
  9. FUROSEMID ORIFARM [Concomitant]
     Active Substance: FUROSEMIDE
     Dosage: 40 MG, AS NECESSARY
     Route: 065
  10. SIMVASTATIN SANDOZ [Concomitant]
     Active Substance: SIMVASTATIN
     Dosage: 20 MG, QD
     Route: 065
  11. AMLODIPIN AUROBINDO [Concomitant]
     Active Substance: AMLODIPINE BESYLATE
     Dosage: 10 MG, QD
     Route: 065

REACTIONS (1)
  - International normalised ratio increased [Unknown]

NARRATIVE: CASE EVENT DATE: 201906
